FAERS Safety Report 6331657-6 (Version None)
Quarter: 2009Q3

REPORT INFORMATION
  Report Type: 
  Country: None (occurrence: None)
  Receive Date: 20090827
  Receipt Date: 20090824
  Transmission Date: 20100115
  Serious: Yes (Hospitalization, Other)
  Sender: FDA-Public Use
  Company Number: BE-ABBOTT-08P-013-0433124-00

PATIENT
  Sex: Female

DRUGS (10)
  1. HUMIRA [Suspect]
     Indication: RHEUMATOID ARTHRITIS
     Dates: start: 20061109, end: 20070821
  2. HUMIRA [Suspect]
     Dates: start: 20071108
  3. ARAVA [Concomitant]
     Indication: RHEUMATOID ARTHRITIS
  4. PREDNISOLONE [Concomitant]
     Indication: RHEUMATOID ARTHRITIS
  5. GLURENORM [Concomitant]
     Indication: DRUG USE FOR UNKNOWN INDICATION
  6. ZESTRIL [Concomitant]
     Indication: DRUG USE FOR UNKNOWN INDICATION
  7. LASIX [Concomitant]
     Indication: DRUG USE FOR UNKNOWN INDICATION
  8. MARCUMAR [Concomitant]
     Indication: DRUG USE FOR UNKNOWN INDICATION
  9. MEDROL [Concomitant]
     Indication: DRUG USE FOR UNKNOWN INDICATION
  10. FRAXODI [Concomitant]
     Indication: DRUG USE FOR UNKNOWN INDICATION

REACTIONS (9)
  - ATRIAL FIBRILLATION [None]
  - CARDIAC FAILURE [None]
  - DILATATION ATRIAL [None]
  - EMOTIONAL DISORDER [None]
  - FATIGUE [None]
  - MITRAL VALVE CALCIFICATION [None]
  - MITRAL VALVE INCOMPETENCE [None]
  - MITRAL VALVE PROLAPSE [None]
  - POST PROCEDURAL COMPLICATION [None]
